FAERS Safety Report 24302876 (Version 2)
Quarter: 2024Q3

REPORT INFORMATION
  Report Type: Spontaneous
  Country: IT (occurrence: IT)
  Receive Date: 20240910
  Receipt Date: 20240924
  Transmission Date: 20241016
  Serious: Yes (Death, Life-Threatening, Hospitalization)
  Sender: RANBAXY
  Company Number: IT-SUN PHARMACEUTICAL INDUSTRIES LTD-2024RR-466786

PATIENT
  Age: 69 Year
  Sex: Female
  Weight: 60 kg

DRUGS (6)
  1. OXALIPLATIN [Suspect]
     Active Substance: OXALIPLATIN
     Indication: Oesophageal cancer metastatic
     Dosage: 85 MG/M2 EVERY 14 DAYS DOSE ADMINISTERED WITH 20% REDUCTION
     Route: 040
     Dates: start: 20240507, end: 20240507
  2. FLUOROURACIL [Suspect]
     Active Substance: FLUOROURACIL
     Indication: Oesophageal cancer metastatic
     Dosage: 500 MG/M2 EVERY 14 DAYS + 2000 MG/M2 I.C. 22 HOURS +22 HOURS DOSE ADMINISTERED WITH 20% REDUCTION
     Route: 040
     Dates: start: 20240507, end: 20240507
  3. OPDIVO [Suspect]
     Active Substance: NIVOLUMAB
     Indication: Oesophageal cancer metastatic
     Dosage: 240 MG EVERY 14 DAYS
     Route: 040
     Dates: start: 20240507, end: 20240507
  4. OPDIVO [Suspect]
     Active Substance: NIVOLUMAB
     Indication: Oesophageal cancer metastatic
     Dosage: 240 MG OGNI 14 GIORNI
     Route: 065
     Dates: start: 20240507, end: 20240507
  5. FLUOROURACIL [Suspect]
     Active Substance: FLUOROURACIL
     Indication: Oesophageal cancer metastatic
     Dosage: 500 MG/M2  OGNI 14 GG + 2000 MG/M2 I.C. 22 ORE +22 ORE DOSE SOMMINISTRATA CON RIDUZIONE 20%
     Route: 065
     Dates: start: 20240507, end: 20240507
  6. OXALIPLATIN [Suspect]
     Active Substance: OXALIPLATIN
     Indication: Oesophageal cancer metastatic
     Dosage: 85 MG/M2 OGNI 14 GIORNI DOSE SOMMINISTRATA CON RIDUZIONE 20%
     Route: 065
     Dates: start: 20240507, end: 20240507

REACTIONS (2)
  - Pulmonary embolism [Fatal]
  - Oesophageal haemorrhage [Recovered/Resolved with Sequelae]

NARRATIVE: CASE EVENT DATE: 20240513
